FAERS Safety Report 6451409-6 (Version None)
Quarter: 2009Q4

REPORT INFORMATION
  Report Type: 
  Country: None (occurrence: None)
  Receive Date: 20091123
  Receipt Date: 20091112
  Transmission Date: 20100525
  Serious: Yes (Disabling, Other)
  Sender: FDA-Public Use
  Company Number: JP-BRISTOL-MYERS SQUIBB COMPANY-14696355

PATIENT
  Age: 40 Year
  Sex: Female
  Weight: 51 kg

DRUGS (2)
  1. TAXOL [Suspect]
     Indication: BREAST CANCER STAGE IV
     Dosage: TAXOL 102MG/D IV:05-OCT-2007,02-NOV-2007,04-DEC-2007.141MG/D26-OCT-2007,26-NOV-2007,21-DEC-2007.
     Route: 041
     Dates: start: 20070928, end: 20071221
  2. BEVACIZUMAB [Suspect]
     Indication: BREAST CANCER STAGE IV
     Dosage: THERAAPY DATES: 12-NOV-2007,26-NOV-2007,11-DEC-2007,21-DEC-2007.
     Route: 042
     Dates: start: 20071112, end: 20071221

REACTIONS (1)
  - SCLERODERMA [None]
